FAERS Safety Report 7883651-1 (Version None)
Quarter: 2011Q4

REPORT INFORMATION
  Report Type: 
  Country: None (occurrence: None)
  Receive Date: 20111031
  Receipt Date: 20111014
  Transmission Date: 20120403
  Serious: Yes (Hospitalization)
  Sender: FDA-Public Use
  Company Number: JP-2011-11621

PATIENT
  Age: 43 Year
  Sex: Male
  Weight: 77.3 kg

DRUGS (19)
  1. OPC-41061 (TOLVAPTAN) TABLET [Suspect]
     Indication: CONGENITAL CYSTIC KIDNEY DISEASE
     Dosage: 60 MG MILLIGRAM(S), DAILY DOSE, ORAL 90 MG MILLIGRAM(S), DAILY DOSE, ORAL 120 MG MILLIGRAM(S), DAILY
     Route: 048
     Dates: start: 20110526, end: 20110601
  2. OPC-41061 (TOLVAPTAN) TABLET [Suspect]
     Indication: CONGENITAL CYSTIC KIDNEY DISEASE
     Dosage: 60 MG MILLIGRAM(S), DAILY DOSE, ORAL 90 MG MILLIGRAM(S), DAILY DOSE, ORAL 120 MG MILLIGRAM(S), DAILY
     Route: 048
     Dates: start: 20110602, end: 20110608
  3. OPC-41061 (TOLVAPTAN) TABLET [Suspect]
     Indication: CONGENITAL CYSTIC KIDNEY DISEASE
     Dosage: 60 MG MILLIGRAM(S), DAILY DOSE, ORAL 90 MG MILLIGRAM(S), DAILY DOSE, ORAL 120 MG MILLIGRAM(S), DAILY
     Route: 048
     Dates: start: 20110609
  4. CYMBALTA [Concomitant]
  5. LOXONIN (LOXOPROFEN SODIUM) [Concomitant]
  6. ALLOPURINOL [Concomitant]
  7. ATELEC (CILNIDIPINE) [Concomitant]
  8. ARTIST (CARVEDILOL) [Concomitant]
  9. PROCATEROL HCL [Concomitant]
  10. DOXAZOSIN MESYLATE [Concomitant]
  11. OLMESARTAN MEDOXOMIL [Concomitant]
  12. OMEPTOROL (OMEPRAZOLE) [Concomitant]
  13. GASMOTIN (MOSAPRIDE CITRATE) [Concomitant]
  14. ADOAIR (FLUTICASONE PROPIONATE, SALMETEROL XINAFOATE) [Concomitant]
  15. PERINDOPRIL ERBUMINE [Concomitant]
  16. HALCION [Concomitant]
  17. SEDIEL (TANDOSPIRONE CITRATE) [Concomitant]
  18. ROHYPNOL (FLUNITRAZEPAM) [Concomitant]
  19. MIRTAZAPINE [Concomitant]

REACTIONS (13)
  - DEPRESSION [None]
  - C-REACTIVE PROTEIN INCREASED [None]
  - RENAL PAIN [None]
  - VOMITING [None]
  - RENAL CYST HAEMORRHAGE [None]
  - PYREXIA [None]
  - DECREASED APPETITE [None]
  - PNEUMONIA [None]
  - RENAL IMPAIRMENT [None]
  - ANAEMIA [None]
  - HYPOPHAGIA [None]
  - RENAL CYST INFECTION [None]
  - CONCOMITANT DISEASE AGGRAVATED [None]
